FAERS Safety Report 5656494-7 (Version None)
Quarter: 2008Q1

REPORT INFORMATION
  Report Type: 
  Country: None (occurrence: None)
  Receive Date: 20080309
  Receipt Date: 20080130
  Transmission Date: 20080703
  Serious: No
  Sender: FDA-Public Use
  Company Number: US-BAYER-200810493BCC

PATIENT
  Age: 65 Year
  Sex: Female
  Weight: 53 kg

DRUGS (5)
  1. ALEVE [Suspect]
     Indication: DRUG USE FOR UNKNOWN INDICATION
     Dosage: TOTAL DAILY DOSE: 220 MG  UNIT DOSE: 220 MG
     Route: 048
     Dates: start: 20080130
  2. VYTORIN [Concomitant]
  3. PEPCID [Concomitant]
  4. ADVAIR DISKUS 100/50 [Concomitant]
  5. NASAL SPRAY [Concomitant]

REACTIONS (1)
  - PRURITUS GENERALISED [None]
